FAERS Safety Report 4957201-3 (Version None)
Quarter: 2006Q1

REPORT INFORMATION
  Report Type: 
  Country: None (occurrence: None)
  Receive Date: 20060329
  Receipt Date: 20051005
  Transmission Date: 20060701
  Serious: Yes (Hospitalization)
  Sender: FDA-Public Use
  Company Number: US-MERCK-0510USA03836

PATIENT
  Age: 43 Year
  Sex: Female
  Weight: 168 kg

DRUGS (2)
  1. VIOXX [Suspect]
     Indication: RHEUMATOID ARTHRITIS
     Route: 048
     Dates: start: 20030130
  2. TUMS [Concomitant]
     Route: 065

REACTIONS (9)
  - DRUG INEFFECTIVE [None]
  - DYSPEPSIA [None]
  - GASTRIC DISORDER [None]
  - HYPERTENSION [None]
  - HYPOKALAEMIA [None]
  - INFLUENZA [None]
  - PAIN IN EXTREMITY [None]
  - PULMONARY EMBOLISM [None]
  - PULMONARY THROMBOSIS [None]
